FAERS Safety Report 6446208-5 (Version None)
Quarter: 2009Q4

REPORT INFORMATION
  Report Type: 
  Country: None (occurrence: None)
  Receive Date: 20091119
  Receipt Date: 20091112
  Transmission Date: 20100525
  Serious: Yes (Death)
  Sender: FDA-Public Use
  Company Number: GB-JNJFOC-20090902829

PATIENT
  Sex: Female
  Weight: 75 kg

DRUGS (9)
  1. REMICADE [Suspect]
     Indication: RHEUMATOID ARTHRITIS
     Route: 042
     Dates: start: 20060728, end: 20090415
  2. METHOTREXATE [Concomitant]
  3. CANDESARTAN CILEXETIL [Concomitant]
  4. FOLIC ACID [Concomitant]
  5. FOSAMAX [Concomitant]
  6. LANSOPRAZOLE [Concomitant]
  7. PARACETAMOL [Concomitant]
  8. SIMVASTATIN [Concomitant]
  9. PLAVIX [Concomitant]

REACTIONS (1)
  - COLON CANCER METASTATIC [None]
